FAERS Safety Report 12248486 (Version 2)
Quarter: 2016Q2

REPORT INFORMATION
  Report Type: Report from Study
  Country: US (occurrence: US)
  Receive Date: 20160408
  Receipt Date: 20160503
  Transmission Date: 20160815
  Serious: No
  Sender: FDA-Public Use
  Company Number: US-ASTRAZENECA-2016SE27827

PATIENT
  Weight: 9.3 kg

DRUGS (2)
  1. SYNAGIS [Suspect]
     Active Substance: PALIVIZUMAB
     Indication: RESPIRATORY SYNCYTIAL VIRUS INFECTION
     Dosage: 100MG AND 50MG VIAL
     Route: 030
  2. SYNAGIS [Suspect]
     Active Substance: PALIVIZUMAB
     Indication: RESPIRATORY SYNCYTIAL VIRUS INFECTION
     Route: 030
     Dates: start: 20160229

REACTIONS (4)
  - Ear pain [Not Recovered/Not Resolved]
  - Crying [Not Recovered/Not Resolved]
  - Ear infection [Not Recovered/Not Resolved]
  - Insomnia [Not Recovered/Not Resolved]
